FAERS Safety Report 8180431-7 (Version None)
Quarter: 2012Q1

REPORT INFORMATION
  Report Type: 
  Country: None (occurrence: None)
  Receive Date: 20120302
  Receipt Date: 20120227
  Transmission Date: 20120608
  Serious: Yes (Other)
  Sender: FDA-Public Use
  Company Number: JP-PFIZER INC-2010007751

PATIENT
  Age: 82 Year
  Sex: Male

DRUGS (1)
  1. XALATAN [Suspect]
     Indication: NORMAL TENSION GLAUCOMA
     Dosage: UNK
     Route: 031
     Dates: start: 20090108, end: 20090220

REACTIONS (2)
  - ASTHENOPIA [None]
  - EYELID PTOSIS [None]
